FAERS Safety Report 19862463 (Version 2)
Quarter: 2022Q2

REPORT INFORMATION
  Report Type: Report from Study
  Country: US (occurrence: US)
  Receive Date: 20210921
  Receipt Date: 20220513
  Transmission Date: 20220721
  Serious: Yes (Death)
  Sender: FDA-Public Use
  Company Number: US-PFIZER INC-202101210962

PATIENT

DRUGS (3)
  1. CARBOPLATIN [Suspect]
     Active Substance: CARBOPLATIN
     Indication: Non-small cell lung cancer metastatic
     Dosage: (AUC 6), EVERY THREE WEEKS FOR 4 CYCLES
  2. PACLITAXEL [Suspect]
     Active Substance: PACLITAXEL
     Indication: Non-small cell lung cancer metastatic
     Dosage: 200 MG/M2, EVERY THREE WEEKS FOR 4 CYCLES
  3. ASCORBATE DE SODIUM [Concomitant]
     Indication: Non-small cell lung cancer metastatic
     Dosage: 75 G, TWICE PER WEEK FOR 12 WEEKS
     Route: 042

REACTIONS (1)
  - Febrile neutropenia [Fatal]
